FAERS Safety Report 9255943 (Version 1)
Quarter: 2013Q2

REPORT INFORMATION
  Report Type: Spontaneous
  Country: US (occurrence: US)
  Receive Date: 20130425
  Receipt Date: 20130425
  Transmission Date: 20140414
  Serious: Yes (Other)
  Sender: FDA-Public Use
  Company Number: CHPA2013US006846

PATIENT
  Age: 54 Year
  Sex: Female

DRUGS (3)
  1. MYOFLEX ANALGESIC CREME [Suspect]
     Indication: MUSCLE SPASMS
     Dosage: A LITTLE BIT ON THE TIME OF MY FINGER, ONCE EVERY 2 WEEKS AT NIGHT
     Route: 061
     Dates: start: 1983
  2. MYOFLEX ANALGESIC CREME [Suspect]
     Indication: ARTHRALGIA
  3. HYDROCODONE [Concomitant]
     Indication: PAIN
     Dosage: UNK, QHS
     Route: 048

REACTIONS (4)
  - Osteoporosis [Not Recovered/Not Resolved]
  - Pain in extremity [Unknown]
  - Therapeutic response unexpected [Unknown]
  - Off label use [Unknown]
